FAERS Safety Report 5484096-4 (Version None)
Quarter: 2007Q4

REPORT INFORMATION
  Report Type: 
  Country: None (occurrence: None)
  Receive Date: 20071012
  Receipt Date: 20071010
  Transmission Date: 20080405
  Serious: Yes (Hospitalization)
  Sender: FDA-Public Use
  Company Number: US-SHR-US-2006-020320

PATIENT
  Age: 53 Year
  Sex: Male

DRUGS (1)
  1. BETASERON [Suspect]
     Indication: RELAPSING-REMITTING MULTIPLE SCLEROSIS
     Dosage: 2 MIU, EVERY 2D
     Route: 058
     Dates: start: 20060712, end: 20060714

REACTIONS (2)
  - ABASIA [None]
  - HYPOAESTHESIA [None]
